FAERS Safety Report 25716443 (Version 1)
Quarter: 2025Q3

REPORT INFORMATION
  Report Type: Spontaneous
  Country: US (occurrence: None)
  Receive Date: 20250821
  Receipt Date: 20250821
  Transmission Date: 20251020
  Serious: Yes (Life-Threatening, Hospitalization, Disabling, Other)
  Sender: FDA-CTU
  Company Number: None

PATIENT
  Sex: Male
  Weight: 92.99 kg

DRUGS (9)
  1. GABAPENTIN [Suspect]
     Active Substance: GABAPENTIN
     Indication: Pain in extremity
     Dosage: FREQUENCY : TWICE A DAY;?
     Route: 048
     Dates: start: 20241030, end: 20250524
  2. budesonide-formoterol 160--45 mcg/puff AERO [Concomitant]
  3. Cetirizine 10 MG TABS Commonly known as: ZyrTEC [Concomitant]
  4. Chlorthafidone 25 MG TABS Commonly known as: HYGROTEN [Concomitant]
  5. desonide 0.05 % CREA cream  topically daily as need )..TRIDESlLON [Concomitant]
  6. Empagfiflozin 10 MG TABS Commonly known as: Jardiance [Concomitant]
  7. gabapentin 600 MG TABS Commonly known as: NEURONTIN [Concomitant]
  8. glipizide 10 MG tablet XLCommonly known as: GLUCOTROL GLUCOSE TEST STR [Concomitant]
  9. lpratropium-albuterol 05-2.5 (3) MG/3ML nebulize. known as: DUONEB [Concomitant]

REACTIONS (4)
  - Gait disturbance [None]
  - Balance disorder [None]
  - Cognitive disorder [None]
  - Dyspraxia [None]
